FAERS Safety Report 11219538 (Version 1)
Quarter: 2015Q2

REPORT INFORMATION
  Report Type: Spontaneous
  Country: US (occurrence: None)
  Receive Date: 20150624
  Receipt Date: 20150624
  Transmission Date: 20150821
  Serious: Yes (Life-Threatening, Hospitalization, Disabling, Other)
  Sender: FDA-Public Use
  Company Number: None

PATIENT
  Age: 70 Year
  Sex: Female
  Weight: 51.26 kg

DRUGS (7)
  1. ANACIN [Concomitant]
     Active Substance: ASPIRIN\CAFFEINE
  2. MARSMELLOW [Concomitant]
  3. KENALOG [Suspect]
     Active Substance: TRIAMCINOLONE ACETONIDE
     Indication: ASTHENIA
     Dates: start: 200802, end: 20090905
  4. WHEELCHAIR [Concomitant]
     Active Substance: DEVICE
  5. KENALOG [Suspect]
     Active Substance: TRIAMCINOLONE ACETONIDE
     Indication: SCIATICA
     Dates: start: 200802, end: 20090905
  6. DIAPERS [Concomitant]
  7. VITAMIN C [Concomitant]
     Active Substance: ASCORBIC ACID

REACTIONS (5)
  - Fall [None]
  - Urinary incontinence [None]
  - Monoplegia [None]
  - Paraesthesia [None]
  - Pain [None]

NARRATIVE: CASE EVENT DATE: 20080905
